FAERS Safety Report 17919380 (Version 1)
Quarter: 2020Q2

REPORT INFORMATION
  Report Type: Spontaneous
  Country: TH (occurrence: TH)
  Receive Date: 20200619
  Receipt Date: 20200619
  Transmission Date: 20200714
  Serious: Yes (Other)
  Sender: FDA-Public Use
  Company Number: TH-ARBOR PHARMACEUTICALS, LLC-TH-2020ARB000464

PATIENT
  Age: 40 Year
  Sex: Female

DRUGS (3)
  1. PRIMAQUINE [Suspect]
     Active Substance: PRIMAQUINE PHOSPHATE
     Indication: MALARIA PROPHYLAXIS
     Dosage: 30 MG, SINGLE
  2. IVERMECTIN. [Suspect]
     Active Substance: IVERMECTIN
     Indication: MALARIA PROPHYLAXIS
     Dosage: 400 ?G/KG, SINGLE
  3. DIHYDROARTEMISININ W/PIPERAQUINE [Suspect]
     Active Substance: ARTENIMOL\PIPERAQUINE PHOSPHATE
     Indication: MALARIA PROPHYLAXIS
     Dosage: 120/960 MG, SINGLE

REACTIONS (2)
  - Hepatic enzyme increased [Recovered/Resolved]
  - Drug interaction [Recovered/Resolved]
